FAERS Safety Report 23915133 (Version 1)
Quarter: 2024Q2

REPORT INFORMATION
  Report Type: Report from Study
  Country: DE (occurrence: DE)
  Receive Date: 20240529
  Receipt Date: 20240529
  Transmission Date: 20240716
  Serious: Yes (Other)
  Sender: FDA-Public Use
  Company Number: DE-ABBVIE-5760628

PATIENT

DRUGS (3)
  1. AZACITIDINE [Suspect]
     Active Substance: AZACITIDINE
     Indication: Acute myeloid leukaemia
     Dosage: UNK
     Route: 065
  2. VENETOCLAX [Suspect]
     Active Substance: VENETOCLAX
     Indication: Acute myeloid leukaemia
     Dosage: 300 MILLIGRAM
     Route: 048
  3. VENETOCLAX [Suspect]
     Active Substance: VENETOCLAX
     Dosage: UNK
     Route: 048

REACTIONS (4)
  - Drug intolerance [Unknown]
  - Adverse drug reaction [Unknown]
  - Haematotoxicity [Unknown]
  - Diarrhoea [Unknown]
